APPROVED DRUG PRODUCT: HYDROCHLOROTHIAZIDE
Active Ingredient: HYDROCHLOROTHIAZIDE
Strength: 50MG
Dosage Form/Route: TABLET;ORAL
Application: A040774 | Product #002
Applicant: APOTEX INC
Approved: Oct 3, 2007 | RLD: No | RS: No | Type: DISCN